FAERS Safety Report 16879193 (Version 2)
Quarter: 2020Q1

REPORT INFORMATION
  Report Type: Spontaneous
  Country: US (occurrence: US)
  Receive Date: 20191003
  Receipt Date: 20200122
  Transmission Date: 20200409
  Serious: Yes (Hospitalization, Other)
  Sender: FDA-Public Use
  Company Number: US-BEH-2019107399

PATIENT
  Age: 63 Year
  Sex: Female

DRUGS (32)
  1. HIZENTRA [Suspect]
     Active Substance: HUMAN IMMUNOGLOBULIN G
     Indication: CONGENITAL HYPOGAMMAGLOBULINAEMIA
     Dosage: 16 GRAM, QW
     Route: 058
     Dates: start: 201908
  2. CLARITIN [CLARITHROMYCIN] [Concomitant]
     Active Substance: CLARITHROMYCIN
  3. FLONASE [Concomitant]
     Active Substance: FLUTICASONE PROPIONATE
  4. EPINEPHRINE. [Concomitant]
     Active Substance: EPINEPHRINE
  5. POTASSIUM CHLORIDE. [Concomitant]
     Active Substance: POTASSIUM CHLORIDE
  6. DICLOFENAC SODIUM. [Concomitant]
     Active Substance: DICLOFENAC SODIUM
  7. LIVALO [Concomitant]
     Active Substance: PITAVASTATIN CALCIUM
     Dosage: 2 MILLIGRAM
  8. PREDNISONE. [Concomitant]
     Active Substance: PREDNISONE
  9. ADVAIR HFA [Concomitant]
     Active Substance: FLUTICASONE PROPIONATE\SALMETEROL XINAFOATE
  10. BUDESONIDE. [Concomitant]
     Active Substance: BUDESONIDE
  11. HYDROCODONE/ACETAMINOPHEN [Concomitant]
     Active Substance: ACETAMINOPHEN\HYDROCODONE
  12. MUCINEX ALLERGY [Concomitant]
     Active Substance: FEXOFENADINE HYDROCHLORIDE
     Dosage: 1200 MILLIGRAM
  13. ALBUTEROL SULFATE. [Concomitant]
     Active Substance: ALBUTEROL SULFATE
  14. MULTAQ [Suspect]
     Active Substance: DRONEDARONE
  15. OCUVITE ADULT 50+ [ASCORBIC ACID;COPPER GLUCONATE;FISH OIL;TOCOPHEROL; [Concomitant]
  16. PROLIA [Concomitant]
     Active Substance: DENOSUMAB
  17. XOLAIR [Concomitant]
     Active Substance: OMALIZUMAB
  18. COQ 10 [Concomitant]
     Active Substance: UBIDECARENONE
     Dosage: 100 MILLIGRAM
  19. AUGMENTIN [Concomitant]
     Active Substance: AMOXICILLIN\CLAVULANATE POTASSIUM
  20. ESTRACE [Concomitant]
     Active Substance: ESTRADIOL
  21. IPRATROPIUM BROMIDE. [Concomitant]
     Active Substance: IPRATROPIUM BROMIDE
  22. DIFLUCAN [Concomitant]
     Active Substance: FLUCONAZOLE
     Dosage: 100 MILLIGRAM
  23. DOXYCYCLINE HYCLATE. [Concomitant]
     Active Substance: DOXYCYCLINE HYCLATE
     Dosage: 100 MILLIGRAM
     Route: 065
  24. HIZENTRA [Interacting]
     Active Substance: HUMAN IMMUNOGLOBULIN G
     Dosage: UNK
     Route: 058
  25. BIOTIN [Concomitant]
     Active Substance: BIOTIN
  26. EPIPEN [Concomitant]
     Active Substance: EPINEPHRINE
  27. NYSTATIN. [Concomitant]
     Active Substance: NYSTATIN
  28. HYDROCODONE [Concomitant]
     Active Substance: HYDROCODONE
  29. FUROSEMIDE. [Concomitant]
     Active Substance: FUROSEMIDE
  30. MULTIVITAMINS [VITAMINS NOS] [Concomitant]
     Active Substance: VITAMINS
  31. FLUCONAZOLE. [Concomitant]
     Active Substance: FLUCONAZOLE
  32. DUPILUMAB [Interacting]
     Active Substance: DUPILUMAB

REACTIONS (22)
  - Infusion site erythema [Unknown]
  - Fatigue [Unknown]
  - Drug interaction [Unknown]
  - Fatigue [Recovered/Resolved]
  - Pain [Unknown]
  - Gastroenteritis viral [Recovered/Resolved]
  - Dyspnoea [Unknown]
  - Diarrhoea [Unknown]
  - Asthenia [Unknown]
  - Abdominal pain upper [Unknown]
  - Gastroenteritis sapovirus [Recovered/Resolved]
  - Cystitis [Recovered/Resolved]
  - Cystitis [Recovered/Resolved]
  - Sinusitis [Unknown]
  - Chest discomfort [Unknown]
  - Upper-airway cough syndrome [Unknown]
  - Asthma [Unknown]
  - Respiratory disorder [Recovered/Resolved]
  - Gastroenteritis sapovirus [Unknown]
  - Gastrointestinal disorder [Unknown]
  - Gastroenteritis viral [Recovered/Resolved]
  - Blood urine present [Recovered/Resolved]

NARRATIVE: CASE EVENT DATE: 2019
